FAERS Safety Report 4533672-1 (Version None)
Quarter: 2004Q4

REPORT INFORMATION
  Report Type: 
  Country: None (occurrence: None)
  Receive Date: 20041221
  Receipt Date: 20041213
  Transmission Date: 20050328
  Serious: Yes (Other)
  Sender: FDA-Public Use
  Company Number: DE-NOVOPROD-241068

PATIENT
  Age: 39 Year
  Sex: Female

DRUGS (1)
  1. ACTIVELLE [Suspect]
     Indication: HORMONE REPLACEMENT THERAPY
     Dates: start: 20020101

REACTIONS (13)
  - ANXIETY [None]
  - ARRHYTHMIA [None]
  - DRUG INEFFECTIVE [None]
  - DYSPHORIA [None]
  - GRAND MAL CONVULSION [None]
  - HORMONE LEVEL ABNORMAL [None]
  - HOT FLUSH [None]
  - IMPAIRED DRIVING ABILITY [None]
  - LIMB INJURY [None]
  - MALAISE [None]
  - PHARMACEUTICAL PRODUCT COMPLAINT [None]
  - SLEEP DISORDER [None]
  - VERTIGO [None]
